FAERS Safety Report 25585840 (Version 2)
Quarter: 2025Q3

REPORT INFORMATION
  Report Type: Spontaneous
  Country: US (occurrence: US)
  Receive Date: 20250721
  Receipt Date: 20250729
  Transmission Date: 20251020
  Serious: Yes (Death, Other)
  Sender: CSL BEHRING
  Company Number: US-BEH-2025212645

PATIENT

DRUGS (3)
  1. HUMAN IMMUNOGLOBULIN G [Suspect]
     Active Substance: HUMAN IMMUNOGLOBULIN G
     Dosage: 1 G/KG AT 20 WEEKS
     Route: 064
  2. PROLINE [Suspect]
     Active Substance: PROLINE
     Indication: Product used for unknown indication
     Route: 064
  3. PREDNISONE [Suspect]
     Active Substance: PREDNISONE
     Route: 064

REACTIONS (3)
  - Acute respiratory failure [Fatal]
  - Premature baby [Unknown]
  - Foetal exposure during pregnancy [Unknown]
